FAERS Safety Report 18492234 (Version 4)
Quarter: 2021Q2

REPORT INFORMATION
  Report Type: Spontaneous
  Country: IT (occurrence: IT)
  Receive Date: 20201111
  Receipt Date: 20210610
  Transmission Date: 20210717
  Serious: Yes (Hospitalization, Other)
  Sender: FDA-Public Use
  Company Number: NVSC2020IT266558

PATIENT
  Age: 67 Year
  Sex: Male

DRUGS (17)
  1. VIT D [Concomitant]
     Active Substance: VITAMIN D NOS
     Indication: PRODUCT USED FOR UNKNOWN INDICATION
     Dosage: UNK
     Route: 065
  2. HYDROXYCHLOROQUINE SULFATE. [Interacting]
     Active Substance: HYDROXYCHLOROQUINE SULFATE
     Indication: COVID-19 PNEUMONIA
     Dosage: UNK
     Route: 065
  3. CEFTRIAXONE. [Suspect]
     Active Substance: CEFTRIAXONE
     Indication: COVID-19 PNEUMONIA
     Dosage: UNK
     Route: 065
  4. SITAGLIPTIN [Suspect]
     Active Substance: SITAGLIPTIN
     Indication: DIABETES MELLITUS
     Dosage: 50 MG, QD (1/DAY)
     Route: 065
     Dates: start: 201806
  5. L?THYROXINE [Suspect]
     Active Substance: LEVOTHYROXINE
     Indication: HYPOPITUITARISM
     Dosage: 100 UG, QD (1/DAY)
     Route: 065
  6. METYRAPONE [Suspect]
     Active Substance: METYRAPONE
     Dosage: 500 MG, QD (1/DAY) BEDTIME
     Route: 065
     Dates: start: 2019, end: 2019
  7. CABERGOLINE. [Suspect]
     Active Substance: CABERGOLINE
     Indication: CUSHING^S SYNDROME
     Dosage: 0.5 MG, QD
     Route: 065
  8. ACETYLSALICYLIC ACID [Suspect]
     Active Substance: ASPIRIN
     Indication: PRODUCT USED FOR UNKNOWN INDICATION
     Dosage: UNK
     Route: 065
  9. METYRAPONE [Suspect]
     Active Substance: METYRAPONE
     Indication: PITUITARY-DEPENDENT CUSHING^S SYNDROME
     Dosage: UNK
     Route: 065
     Dates: start: 201805
  10. TEMOZOLOMIDE. [Suspect]
     Active Substance: TEMOZOLOMIDE
     Indication: PITUITARY TUMOUR BENIGN
     Dosage: UNK
     Route: 065
     Dates: end: 20200131
  11. AZITHROMYCIN DIHYDRATE. [Suspect]
     Active Substance: AZITHROMYCIN DIHYDRATE
     Indication: COVID-19 PNEUMONIA
     Dosage: UNK
     Route: 065
  12. METYRAPONE [Suspect]
     Active Substance: METYRAPONE
     Dosage: 250 MG, QD
     Route: 065
     Dates: start: 202001
  13. LEVETIRACETAM. [Interacting]
     Active Substance: LEVETIRACETAM
     Indication: COVID-19
     Dosage: UNK
     Route: 065
  14. PASIREOTIDE. [Interacting]
     Active Substance: PASIREOTIDE
     Dosage: 40 MG, QMO
     Route: 058
  15. FOTEMUSTINE [Concomitant]
     Active Substance: FOTEMUSTINE
     Indication: PITUITARY TUMOUR BENIGN
     Dosage: UNK
     Route: 065
     Dates: end: 202001
  16. METFORMIN [Concomitant]
     Active Substance: METFORMIN HYDROCHLORIDE
     Indication: DIABETES MELLITUS
     Dosage: UNK
     Route: 065
     Dates: start: 201806
  17. PASIREOTIDE. [Interacting]
     Active Substance: PASIREOTIDE
     Indication: PITUITARY-DEPENDENT CUSHING^S SYNDROME
     Dosage: 40 MG, QMO
     Route: 030

REACTIONS (10)
  - Deep vein thrombosis [Unknown]
  - Drug interaction [Unknown]
  - Off label use [Unknown]
  - Leukopenia [Unknown]
  - Adrenal insufficiency [Unknown]
  - Product use issue [Unknown]
  - Hyperkalaemia [Unknown]
  - Hypotension [Recovered/Resolved]
  - Product use in unapproved indication [Unknown]
  - Lymphopenia [Unknown]

NARRATIVE: CASE EVENT DATE: 202002
